FAERS Safety Report 21549532 (Version 4)
Quarter: 2023Q1

REPORT INFORMATION
  Report Type: Spontaneous
  Country: JP (occurrence: JP)
  Receive Date: 20221103
  Receipt Date: 20230308
  Transmission Date: 20230417
  Serious: Yes (Hospitalization)
  Sender: FDA-Public Use
  Company Number: JP-Eisai Medical Research-EC-2022-127205

PATIENT
  Sex: Female

DRUGS (5)
  1. LENVIMA [Suspect]
     Active Substance: LENVATINIB
     Indication: Endometrial cancer
     Route: 048
     Dates: end: 202205
  2. LENVIMA [Suspect]
     Active Substance: LENVATINIB
     Dosage: 2 WEEKS-ON/1 WEEK-OFF SCHEDULE (DOSE UNKNOWN)
     Route: 048
     Dates: start: 2022, end: 20220911
  3. LENVIMA [Suspect]
     Active Substance: LENVATINIB
     Dosage: 2 WEEKS-ON/1 WEEK-OFF SCHEDULE
     Route: 048
     Dates: start: 20220912, end: 202210
  4. LENVIMA [Suspect]
     Active Substance: LENVATINIB
     Dosage: 2 WEEKS-ON/1 WEEK-OFF SCHEDULE (DOSE UNKNOWN)
     Route: 048
  5. KEYTRUDA [Suspect]
     Active Substance: PEMBROLIZUMAB
     Indication: Endometrial cancer
     Route: 041
     Dates: end: 202210

REACTIONS (2)
  - Erythema multiforme [Recovering/Resolving]
  - Interstitial lung disease [Unknown]

NARRATIVE: CASE EVENT DATE: 20221001
